FAERS Safety Report 9103868 (Version 1)
Quarter: 2013Q1

REPORT INFORMATION
  Report Type: Report from Study
  Country: FR (occurrence: FR)
  Receive Date: 20130219
  Receipt Date: 20130219
  Transmission Date: 20140127
  Serious: Yes (Death, Hospitalization)
  Sender: FDA-Public Use
  Company Number: FR-SANOFI-AVENTIS-2013SA013519

PATIENT
  Age: 46 Year
  Sex: Male

DRUGS (6)
  1. DOCETAXEL [Suspect]
     Indication: LUNG NEOPLASM MALIGNANT
     Route: 042
     Dates: start: 20121010, end: 20121031
  2. ERLOTINIB [Suspect]
     Indication: LUNG NEOPLASM MALIGNANT
     Route: 048
     Dates: start: 20121011, end: 20121115
  3. VENTOLINE [Concomitant]
  4. EXOMUC [Concomitant]
  5. SOLUPRED [Concomitant]
  6. SKENAN [Concomitant]

REACTIONS (1)
  - Tracheal mass [Fatal]
